FAERS Safety Report 7817604 (Version 2)
Quarter: 2013Q3

REPORT INFORMATION
  Report Type: Spontaneous
  Country: US (occurrence: US)
  Receive Date: 20110217
  Receipt Date: 20130812
  Transmission Date: 20140515
  Serious: Yes (Hospitalization, Other)
  Sender: FDA-Public Use
  Company Number: US-B.I. PHARMACEUTICALS,INC./RIDGEFIELD-2011-BP-02465BP

PATIENT
  Age: 81 Year
  Sex: Male

DRUGS (4)
  1. PRADAXA [Suspect]
     Indication: ATRIAL FIBRILLATION
     Dosage: 300 MG
  2. DRONEDARONE [Suspect]
     Indication: ATRIAL FIBRILLATION
     Dosage: 800 MG
     Route: 048
     Dates: start: 201101
  3. LASIX [Concomitant]
  4. ALDACTONE [Concomitant]

REACTIONS (13)
  - Renal failure acute [Not Recovered/Not Resolved]
  - Creatinine renal clearance decreased [Not Recovered/Not Resolved]
  - Blood urea increased [Not Recovered/Not Resolved]
  - Urine output decreased [Not Recovered/Not Resolved]
  - Acidosis [Not Recovered/Not Resolved]
  - Hyperkalaemia [Not Recovered/Not Resolved]
  - Dyspnoea [Not Recovered/Not Resolved]
  - Urinary retention [Not Recovered/Not Resolved]
  - Drug interaction [Not Recovered/Not Resolved]
  - Haemorrhage [Not Recovered/Not Resolved]
  - Prothrombin level increased [Not Recovered/Not Resolved]
  - Activated partial thromboplastin time prolonged [Not Recovered/Not Resolved]
  - Lung disorder [Not Recovered/Not Resolved]
